FAERS Safety Report 9332534 (Version 3)
Quarter: 2013Q4

REPORT INFORMATION
  Report Type: Spontaneous
  Country: FR (occurrence: None)
  Receive Date: 20130603
  Receipt Date: 20131107
  Transmission Date: 20140711
  Serious: Yes (Hospitalization)
  Sender: FDA-Public Use
  Company Number: SYM-2013-04230

PATIENT
  Age: 44 Year
  Sex: Male

DRUGS (8)
  1. ACICLOVIR [Suspect]
     Indication: ENCEPHALOPATHY
     Dates: start: 20130414, end: 20130416
  2. KIVEXA [Suspect]
     Indication: HIV INFECTION
     Route: 048
     Dates: start: 2011, end: 20130413
  3. BACTRIM FORTE [Suspect]
     Indication: PROPHYLAXIS
     Dosage: 1 DOSAGE FORMS, 1 IN 1 D, ORAL
     Route: 048
     Dates: start: 20130413, end: 20130424
  4. CEFTRIAXONE [Suspect]
     Indication: ENCEPHALOPATHY
     Dates: start: 20130414, end: 20130416
  5. INEXIUM [Suspect]
     Indication: PROPHYLAXIS AGAINST GASTROINTESTINAL ULCER
     Dates: start: 20130413, end: 20130417
  6. KALETRA [Suspect]
     Indication: HIV INFECTION
     Route: 048
     Dates: start: 2011, end: 20130413
  7. METHADONE HYDROCHLORIDE (METHADONE HYDROCHLORIDE) (METHADONE HYDROCHLORIDE)? [Concomitant]
  8. DIAMORPHINE HYDROCHLORIDE (DIAMORPHINE HYDROCHLORIDE) (DIAMORPHINE HYDROCHLORIDE)? [Concomitant]

REACTIONS (4)
  - Neutropenia [None]
  - Convulsion [None]
  - Drug abuse [None]
  - Pancytopenia [None]
